FAERS Safety Report 21182360 (Version 1)
Quarter: 2022Q3

REPORT INFORMATION
  Report Type: Spontaneous
  Country: IT (occurrence: IT)
  Receive Date: 20220807
  Receipt Date: 20220807
  Transmission Date: 20221027
  Serious: Yes (Hospitalization)
  Sender: FDA-Public Use
  Company Number: None

PATIENT
  Age: 85 Year
  Sex: Female

DRUGS (10)
  1. OMEPRAZOLE [Suspect]
     Active Substance: OMEPRAZOLE
     Dates: start: 20220101, end: 20220613
  2. GLIMEPIRIDE [Suspect]
     Active Substance: GLIMEPIRIDE
     Route: 048
     Dates: start: 20220101, end: 20220613
  3. HYDROCHLOROTHIAZIDE\ZOFENOPRIL CALCIUM [Suspect]
     Active Substance: HYDROCHLOROTHIAZIDE\ZOFENOPRIL CALCIUM
     Route: 048
     Dates: start: 20220101, end: 20220613
  4. TAPAZOLE [Concomitant]
     Active Substance: METHIMAZOLE
  5. TENORMIN [Concomitant]
     Active Substance: ATENOLOL
  6. ATORVASTATIN [Concomitant]
     Active Substance: ATORVASTATIN
  7. AMLODIPINE BESYLATE\PERINDOPRIL ARGININE [Concomitant]
     Active Substance: AMLODIPINE BESYLATE\PERINDOPRIL ARGININE
  8. CLOPIDOGREL [Concomitant]
     Active Substance: CLOPIDOGREL BISULFATE
  9. CANRENONE [Concomitant]
     Active Substance: CANRENONE
  10. BROMAZEPAM [Concomitant]
     Active Substance: BROMAZEPAM

REACTIONS (1)
  - Hyponatraemia [Recovering/Resolving]

NARRATIVE: CASE EVENT DATE: 20220613
